FAERS Safety Report 5742453-2 (Version None)
Quarter: 2008Q2

REPORT INFORMATION
  Report Type: 
  Country: None (occurrence: None)
  Receive Date: 20080515
  Receipt Date: 20070928
  Transmission Date: 20081010
  Serious: Yes (Hospitalization)
  Sender: FDA-Public Use
  Company Number: 81337

PATIENT
  Age: 75 Year
  Sex: Male

DRUGS (13)
  1. IBUPROFEN [Suspect]
     Dosage: 400 MG TID ORALLY
     Route: 048
     Dates: start: 20070901, end: 20070905
  2. DICLOFENAC 50MG [Suspect]
     Dosage: 50 MG TID ORALLY
     Route: 048
     Dates: start: 20070819, end: 20070822
  3. ADCAL-3 [Concomitant]
  4. ACETAMINOPHEN W/ CODEINE [Concomitant]
  5. DIGOXIN [Concomitant]
  6. LATANOPROST [Concomitant]
  7. OMEPRAZOLE [Concomitant]
  8. PERINDOPRIL [Concomitant]
  9. PRAVASTATIN [Concomitant]
  10. SERETIDE [Concomitant]
  11. LEVOTHYROXINE SODIUM [Concomitant]
  12. TIOTROPIUM BROMIDE [Concomitant]
  13. WARFARIN SODIUM [Concomitant]

REACTIONS (1)
  - CONFUSIONAL STATE [None]
